FAERS Safety Report 5318028-6 (Version None)
Quarter: 2007Q2

REPORT INFORMATION
  Report Type: 
  Country: None (occurrence: None)
  Receive Date: 20070507
  Receipt Date: 20070424
  Transmission Date: 20071010
  Serious: Yes (Hospitalization, Other)
  Sender: FDA-Public Use
  Company Number: DE-ROCHE-492305

PATIENT
  Age: 55 Year
  Sex: Female
  Weight: 65 kg

DRUGS (3)
  1. ROFERON-A [Suspect]
     Indication: PLASMACYTOMA
     Route: 065
     Dates: start: 20050101
  2. VALORON [Concomitant]
     Indication: PAIN
     Dates: start: 20070301
  3. DICLOFENAC [Concomitant]
     Indication: PAIN
     Dates: start: 20070301

REACTIONS (2)
  - CONVULSION [None]
  - HIP SURGERY [None]
